FAERS Safety Report 23694925 (Version 1)
Quarter: 2024Q2

REPORT INFORMATION
  Report Type: Report from Study
  Country: ES (occurrence: ES)
  Receive Date: 20240402
  Receipt Date: 20240402
  Transmission Date: 20240715
  Serious: Yes (Hospitalization)
  Sender: FDA-Public Use
  Company Number: ES-ABBVIE-5687199

PATIENT
  Sex: Female

DRUGS (2)
  1. CARBIDOPA\LEVODOPA [Suspect]
     Active Substance: CARBIDOPA\LEVODOPA
     Indication: Parkinson^s disease
     Route: 050
     Dates: start: 20240307
  2. CARBIDOPA\LEVODOPA [Suspect]
     Active Substance: CARBIDOPA\LEVODOPA

REACTIONS (10)
  - Mental disorder [Unknown]
  - Agitation [Recovered/Resolved]
  - Dyskinesia [Not Recovered/Not Resolved]
  - Logorrhoea [Recovered/Resolved]
  - Palpitations [Recovered/Resolved]
  - Disorientation [Unknown]
  - Tachycardia [Recovered/Resolved]
  - Parosmia [Not Recovered/Not Resolved]
  - Unevaluable event [Recovered/Resolved]
  - Thinking abnormal [Not Recovered/Not Resolved]

NARRATIVE: CASE EVENT DATE: 20240101
